FAERS Safety Report 6095022-1 (Version None)
Quarter: 2009Q1

REPORT INFORMATION
  Report Type: 
  Country: None (occurrence: None)
  Receive Date: 20090227
  Receipt Date: 20080718
  Transmission Date: 20090719
  Serious: No
  Sender: FDA-Public Use
  Company Number: A0617462A

PATIENT
  Sex: Female

DRUGS (13)
  1. LAMICTAL [Suspect]
     Indication: BIPOLAR DISORDER
     Dosage: 25MG TWICE PER DAY
     Route: 048
     Dates: start: 20060601
  2. LEXAPRO [Concomitant]
  3. TRAZODONE HCL [Concomitant]
  4. METOPROLOL [Concomitant]
  5. PRILOSEC [Concomitant]
  6. SAM E [Concomitant]
  7. CALCIUM + MAGNESIUM [Concomitant]
  8. VITAMIN E [Concomitant]
  9. MULTI-VITAMIN [Concomitant]
  10. POLICOSANOL [Concomitant]
  11. GUGGULIPID [Concomitant]
  12. CYMBALTA [Concomitant]
  13. ASPIRIN [Concomitant]

REACTIONS (7)
  - ABDOMINAL DISTENSION [None]
  - ARTHRALGIA [None]
  - ASTHENIA [None]
  - BALANCE DISORDER [None]
  - MYALGIA [None]
  - PAIN IN EXTREMITY [None]
  - TREMOR [None]
